FAERS Safety Report 6934227-1 (Version None)
Quarter: 2010Q3

REPORT INFORMATION
  Report Type: 
  Country: None (occurrence: None)
  Receive Date: 20100820
  Receipt Date: 20100817
  Transmission Date: 20110219
  Serious: Yes (Life-Threatening, Hospitalization, Other)
  Sender: FDA-Public Use
  Company Number: US-ROXANE LABORATORIES, INC.-2010-RO-01097RO

PATIENT
  Age: 65 Year
  Sex: Female

DRUGS (14)
  1. MYCOPHENOLATE MOFETIL [Suspect]
     Indication: LUNG TRANSPLANT
  2. MYCOPHENOLATE MOFETIL [Suspect]
     Dosage: 1000 MG
  3. PREDNISONE [Suspect]
  4. PREDNISONE [Suspect]
     Dosage: 20 MG
  5. LIDOCAINE [Suspect]
     Indication: BRONCHOSCOPY
     Dosage: 10 ML
  6. LIDOCAINE [Suspect]
     Dosage: 10 ML
  7. VALGANCICLOVIR [Suspect]
     Indication: IMMUNOSUPPRESSION
  8. VALGANCICLOVIR [Suspect]
     Dosage: 450 MG
  9. TRIMETHOPRIM + SULFAMETHOXAZOLE [Suspect]
     Indication: ANTIFUNGAL PROPHYLAXIS
  10. DAPSONE [Suspect]
     Indication: ANTIFUNGAL PROPHYLAXIS
  11. TACROLIMUS [Suspect]
     Dosage: 5 MG
  12. ITRACONAZOLE [Suspect]
     Dosage: 200 MG
  13. OMEPRAZOLE [Suspect]
     Dosage: 40 MG
  14. INSULIN [Suspect]

REACTIONS (6)
  - CONDITION AGGRAVATED [None]
  - DYSPNOEA [None]
  - HYPERGLYCAEMIA [None]
  - LEUKOPENIA [None]
  - METHAEMOGLOBINAEMIA [None]
  - TACHYCARDIA [None]
